FAERS Safety Report 10006218 (Version 4)
Quarter: 2014Q2

REPORT INFORMATION
  Report Type: Spontaneous
  Country: US (occurrence: US)
  Receive Date: 20140313
  Receipt Date: 20140502
  Transmission Date: 20141212
  Serious: Yes (Other)
  Sender: FDA-Public Use
  Company Number: US-PFIZER INC-2014072031

PATIENT
  Sex: Female

DRUGS (6)
  1. EFFEXOR XR [Suspect]
     Dosage: UNK
  2. ALPRAZOLAM [Concomitant]
     Dosage: UNK
  3. GLIMEPIRIDE [Concomitant]
     Dosage: 1 MG, UNK
  4. ALBUTEROL [Concomitant]
     Dosage: UNK
  5. ANASTROZOLE [Concomitant]
     Dosage: UNK
  6. ASPIRIN [Concomitant]
     Dosage: 81 MG, UNK

REACTIONS (3)
  - Bacterial infection [Unknown]
  - Gastrointestinal disorder [Unknown]
  - Diarrhoea [Unknown]
